FAERS Safety Report 7648558-3 (Version None)
Quarter: 2011Q3

REPORT INFORMATION
  Report Type: 
  Country: None (occurrence: None)
  Receive Date: 20110801
  Receipt Date: 20110720
  Transmission Date: 20111222
  Serious: Yes (Hospitalization, Other)
  Sender: FDA-Public Use
  Company Number: PHHY2011NL67538

PATIENT
  Sex: Male

DRUGS (13)
  1. CLOZAPINE [Suspect]
     Dosage: UNK
     Dates: start: 20110505
  2. LORAZEPAM [Concomitant]
     Dosage: 1 MG, FIVE TIMES DAILY
  3. LORAMET [Concomitant]
     Dosage: 2 MG, BID
  4. RISPERDAL [Concomitant]
     Dosage: 25 MG, BIW
  5. CLOMIPRAMINE HYDROCHLORIDE [Concomitant]
     Dosage: 37.5 MG, UNK
  6. DEPAKENE [Concomitant]
     Dosage: 1000 MG, UNK
  7. ANAFRANIL [Concomitant]
     Dosage: 150 MG, DAILY
  8. LEVOTHYROXINE SODIUM [Concomitant]
  9. CLOZAPINE [Suspect]
     Dosage: 350 MG, UNK
  10. RISPERIDONE [Concomitant]
  11. DEPAKENE [Concomitant]
     Dosage: UNK
  12. CLONAZEPAM [Concomitant]
  13. LORAZEPAM [Concomitant]
     Dosage: 5 MG, UNK

REACTIONS (29)
  - NAUSEA [None]
  - HYPOTHYROIDISM [None]
  - BLOOD GLUCOSE INCREASED [None]
  - SEBORRHOEIC DERMATITIS [None]
  - GAMMA-GLUTAMYLTRANSFERASE INCREASED [None]
  - CHEST PAIN [None]
  - NECK PAIN [None]
  - DIZZINESS [None]
  - EPILEPSY [None]
  - PSYCHOTIC DISORDER [None]
  - FEELING ABNORMAL [None]
  - DRY MOUTH [None]
  - GENERAL PHYSICAL CONDITION ABNORMAL [None]
  - ERYTHEMA [None]
  - BLOOD URIC ACID DECREASED [None]
  - DYSPNOEA [None]
  - HAEMORRHOIDS [None]
  - CONSTIPATION [None]
  - HEADACHE [None]
  - PAIN IN EXTREMITY [None]
  - IMPAIRED WORK ABILITY [None]
  - WEIGHT FLUCTUATION [None]
  - DELUSION [None]
  - RECTAL HAEMORRHAGE [None]
  - ECZEMA [None]
  - ASPARTATE AMINOTRANSFERASE INCREASED [None]
  - ALANINE AMINOTRANSFERASE INCREASED [None]
  - PYREXIA [None]
  - POLYURIA [None]
